FAERS Safety Report 21782825 (Version 1)
Quarter: 2022Q4

REPORT INFORMATION
  Report Type: Spontaneous
  Country: US (occurrence: US)
  Receive Date: 20221227
  Receipt Date: 20221227
  Transmission Date: 20230113
  Serious: Yes (Other)
  Sender: FDA-Public Use
  Company Number: US-MYLANLABS-2022M1144634

PATIENT
  Age: 24 Year
  Sex: Male

DRUGS (9)
  1. IFOSFAMIDE [Suspect]
     Active Substance: IFOSFAMIDE
     Indication: Bone giant cell tumour malignant
     Dosage: UNK (THE PATIENT RECEIVED ONE CYCLE OF HIGH-DOSE IFOSFAMIDE)
     Route: 065
  2. TEMOZOLOMIDE [Suspect]
     Active Substance: TEMOZOLOMIDE
     Indication: Bone giant cell tumour malignant
     Dosage: UNK
     Route: 065
  3. DENOSUMAB [Suspect]
     Active Substance: DENOSUMAB
     Indication: Bone giant cell tumour malignant
     Dosage: UNK
     Route: 065
  4. VINCRISTINE [Suspect]
     Active Substance: VINCRISTINE
     Indication: Bone giant cell tumour malignant
     Dosage: UNK
     Route: 065
  5. IRINOTECAN [Suspect]
     Active Substance: IRINOTECAN
     Indication: Bone giant cell tumour malignant
     Dosage: UNK
     Route: 065
  6. CABOZANTINIB [Suspect]
     Active Substance: CABOZANTINIB
     Indication: Bone giant cell tumour malignant
     Dosage: UNK
     Route: 065
  7. CISPLATIN [Concomitant]
     Active Substance: CISPLATIN
     Indication: Bone giant cell tumour malignant
     Dosage: UNK
     Route: 065
  8. METHOTREXATE [Concomitant]
     Active Substance: METHOTREXATE
     Indication: Bone giant cell tumour malignant
     Dosage: UNK (THE PATIENT RECEIVED HIGH-DOSE METHOTREXATE)
     Route: 065
  9. DOXORUBICIN [Concomitant]
     Active Substance: DOXORUBICIN
     Indication: Bone giant cell tumour malignant
     Dosage: UNK
     Route: 065

REACTIONS (2)
  - Drug ineffective [Unknown]
  - Acute kidney injury [Unknown]
